FAERS Safety Report 18481256 (Version 3)
Quarter: 2021Q1

REPORT INFORMATION
  Report Type: Spontaneous
  Country: IN (occurrence: IN)
  Receive Date: 20201109
  Receipt Date: 20210317
  Transmission Date: 20210419
  Serious: Yes (Other)
  Sender: FDA-Public Use
  Company Number: IN-PFIZER INC-2020361276

PATIENT
  Age: 57 Year
  Sex: Female
  Weight: 88.3 kg

DRUGS (4)
  1. PALBACE [Suspect]
     Active Substance: PALBOCICLIB
     Indication: BREAST CANCER METASTATIC
     Dosage: 125 MG, CYCLIC (ONCE A DAY, DAY 1?21)
     Route: 048
     Dates: start: 20200914
  2. ZOLEDRONIC ACID [Concomitant]
     Active Substance: ZOLEDRONIC ACID
     Dosage: 100 MG
  3. LETROZOLE. [Concomitant]
     Active Substance: LETROZOLE
     Dosage: 2.5 MG, 1X/DAY
  4. LETROZOLE. [Concomitant]
     Active Substance: LETROZOLE
     Dosage: UNK
     Dates: start: 20200915

REACTIONS (6)
  - Vulval abscess [Unknown]
  - Dry throat [Unknown]
  - Choking [Unknown]
  - Back pain [Unknown]
  - Cough [Unknown]
  - Decreased appetite [Unknown]
